FAERS Safety Report 6250333-1 (Version None)
Quarter: 2009Q2

REPORT INFORMATION
  Report Type: 
  Country: None (occurrence: None)
  Receive Date: 20090626
  Receipt Date: 20090626
  Transmission Date: 20091009
  Serious: Yes (Life-Threatening)
  Sender: FDA-Public Use
  Company Number: None

PATIENT
  Sex: Female
  Weight: 81.6475 kg

DRUGS (1)
  1. ZICAM ZICAM GLUCONICUM 2X MATRIXX [Suspect]
     Indication: NASOPHARYNGITIS
     Dosage: ONE SWAB EVERY 4 HRS NASAL WHENEVER I HAD A COLD
     Route: 045
     Dates: start: 20060601, end: 20080625

REACTIONS (1)
  - ANOSMIA [None]
